FAERS Safety Report 18417439 (Version 3)
Quarter: 2021Q2

REPORT INFORMATION
  Report Type: Spontaneous
  Country: US (occurrence: US)
  Receive Date: 20201022
  Receipt Date: 20210424
  Transmission Date: 20210717
  Serious: No
  Sender: FDA-Public Use
  Company Number: 2020SGN02528

PATIENT
  Sex: Female

DRUGS (4)
  1. HERCEPTIN [Concomitant]
     Active Substance: TRASTUZUMAB
     Indication: BREAST CANCER FEMALE
     Dosage: UNK
     Dates: start: 20200603, end: 20200603
  2. TUKYSA [Suspect]
     Active Substance: TUCATINIB
     Dosage: UNK
  3. TUKYSA [Suspect]
     Active Substance: TUCATINIB
     Indication: BREAST CANCER FEMALE
     Dosage: UNK UNK, BID
     Route: 048
     Dates: start: 20200605
  4. CAPECITABINE. [Concomitant]
     Active Substance: CAPECITABINE
     Indication: BREAST CANCER FEMALE
     Dosage: UNK
     Dates: start: 20200605

REACTIONS (17)
  - Taste disorder [Unknown]
  - Cardiomegaly [Unknown]
  - Hypotension [Unknown]
  - Decreased appetite [Unknown]
  - Dry mouth [Unknown]
  - Spinal pain [Unknown]
  - Skin exfoliation [Unknown]
  - Dizziness [Unknown]
  - Neuropathy peripheral [Unknown]
  - Constipation [Unknown]
  - Urine analysis abnormal [Unknown]
  - Heart rate increased [Unknown]
  - Balance disorder [Unknown]
  - Product dose omission issue [Unknown]
  - Unevaluable event [Unknown]
  - Faeces soft [Unknown]
  - Erythema [Unknown]
